FAERS Safety Report 15488414 (Version 1)
Quarter: 2018Q4

REPORT INFORMATION
  Report Type: Spontaneous
  Country: US (occurrence: US)
  Receive Date: 20181003
  Receipt Date: 20181003
  Transmission Date: 20190205
  Serious: Yes (Death)
  Sender: FDA-Public Use
  Company Number: None

PATIENT
  Age: 64 Year
  Sex: Female

DRUGS (15)
  1. OMEPRAZOLE. [Concomitant]
     Active Substance: OMEPRAZOLE
  2. SIMVASTATIN. [Concomitant]
     Active Substance: SIMVASTATIN
  3. VITAMIND3 [Concomitant]
  4. IMURAN [Concomitant]
     Active Substance: AZATHIOPRINE
  5. PREDNISONE. [Concomitant]
     Active Substance: PREDNISONE
  6. DEXAMETHASONE. [Concomitant]
     Active Substance: DEXAMETHASONE
  7. METFORMIN [Concomitant]
     Active Substance: METFORMIN HYDROCHLORIDE
  8. LOVAZA [Concomitant]
     Active Substance: OMEGA-3-ACID ETHYL ESTERS
  9. ASPIRIN. [Concomitant]
     Active Substance: ASPIRIN
  10. DESMOPRESSIN [Concomitant]
     Active Substance: DESMOPRESSIN
  11. GLIPIZIDE. [Concomitant]
     Active Substance: GLIPIZIDE
  12. MESTINON [Concomitant]
     Active Substance: PYRIDOSTIGMINE BROMIDE
  13. OMNITROPE [Suspect]
     Active Substance: SOMATROPIN
     Indication: HYPOPITUITARISM
     Route: 058
     Dates: start: 20180507
  14. CARVEDILOL. [Concomitant]
     Active Substance: CARVEDILOL
  15. LISINOPRIL. [Concomitant]
     Active Substance: LISINOPRIL

REACTIONS (1)
  - Death [None]

NARRATIVE: CASE EVENT DATE: 20181002
